FAERS Safety Report 5307034-3 (Version None)
Quarter: 2007Q2

REPORT INFORMATION
  Report Type: 
  Country: None (occurrence: None)
  Receive Date: 20070425
  Receipt Date: 20070416
  Transmission Date: 20071010
  Serious: Yes (Hospitalization)
  Sender: FDA-Public Use
  Company Number: FR-ROCHE-493364

PATIENT
  Age: 70 Year
  Sex: Female
  Weight: 57.8 kg

DRUGS (3)
  1. MYCOPHENOLATE MOFETIL [Suspect]
     Route: 048
     Dates: start: 20070322, end: 20070412
  2. NEORAL [Concomitant]
     Dosage: TDD REPORTED AS 250.
     Dates: start: 20070412
  3. HUMALOG [Concomitant]
     Dates: start: 20070412

REACTIONS (4)
  - ASTHENIA [None]
  - CYTOMEGALOVIRUS ANTIBODY POSITIVE [None]
  - EPSTEIN-BARR VIRUS ANTIBODY POSITIVE [None]
  - HAEMOGLOBIN INCREASED [None]
